FAERS Safety Report 9489373 (Version 1)
Quarter: 2013Q3

REPORT INFORMATION
  Report Type: Spontaneous
  Country: AU (occurrence: AU)
  Receive Date: 20130829
  Receipt Date: 20130829
  Transmission Date: 20140515
  Serious: Yes (Other)
  Sender: FDA-Public Use
  Company Number: PHHY2013AU091238

PATIENT
  Sex: Male

DRUGS (9)
  1. TROPISETRON HYDROCHLORIDE [Suspect]
  2. PARACETAMOL [Suspect]
  3. CEFAZOLIN-BC [Suspect]
  4. FENTANYL [Suspect]
  5. METARAMINOL [Suspect]
  6. METRONIDAZOLE [Suspect]
  7. ROCURONIUM BROMIDE [Suspect]
  8. PROPOFOL [Suspect]
  9. MAGNESIUM SULFATE [Suspect]

REACTIONS (2)
  - Electrocardiogram QT prolonged [Unknown]
  - Electrocardiogram T wave inversion [Unknown]
